FAERS Safety Report 13191299 (Version 1)
Quarter: 2017Q1

REPORT INFORMATION
  Report Type: Spontaneous
  Country: US (occurrence: US)
  Receive Date: 20170206
  Receipt Date: 20170206
  Transmission Date: 20170428
  Serious: Yes (Disabling)
  Sender: FDA-Public Use
  Company Number: None

PATIENT
  Age: 58 Year
  Sex: Female
  Weight: 54 kg

DRUGS (6)
  1. NEXIUM [Concomitant]
     Active Substance: ESOMEPRAZOLE MAGNESIUM
  2. CALCIUM [Concomitant]
     Active Substance: CALCIUM
  3. FISH OIL [Concomitant]
     Active Substance: FISH OIL
  4. PROLIA [Suspect]
     Active Substance: DENOSUMAB
     Indication: OSTEOPOROSIS
     Dosage: ?          OTHER FREQUENCY:EVERY SIX MONTHS;?
     Route: 030
     Dates: start: 20160603, end: 20161118
  5. VITAMIN D [Concomitant]
     Active Substance: CHOLECALCIFEROL
  6. SUCRALFATE. [Concomitant]
     Active Substance: SUCRALFATE

REACTIONS (4)
  - Gastroenteritis [None]
  - Nausea [None]
  - Oesophagitis [None]
  - Abdominal pain upper [None]

NARRATIVE: CASE EVENT DATE: 20160606
